FAERS Safety Report 9995509 (Version 1)
Quarter: 2014Q1

REPORT INFORMATION
  Report Type: Spontaneous
  Country: US (occurrence: US)
  Receive Date: 20140311
  Receipt Date: 20140311
  Transmission Date: 20141002
  Serious: No
  Sender: FDA-Public Use
  Company Number: US-BAYER-2014-035839

PATIENT
  Sex: Female

DRUGS (2)
  1. AVELOX [Suspect]
     Indication: RESPIRATORY TRACT INFECTION
     Dosage: UNK
  2. ALEVE CAPLET [Suspect]
     Dosage: UNK

REACTIONS (1)
  - Iris hyperpigmentation [Not Recovered/Not Resolved]
